FAERS Safety Report 8560302-4 (Version None)
Quarter: 2012Q3

REPORT INFORMATION
  Report Type: 
  Country: None (occurrence: None)
  Receive Date: 20120802
  Receipt Date: 20120719
  Transmission Date: 20120928
  Serious: Yes (Other)
  Sender: FDA-Public Use
  Company Number: IE-ELI_LILLY_AND_COMPANY-IE201207005947

PATIENT
  Sex: Female
  Weight: 70 kg

DRUGS (2)
  1. CYMBALTA [Suspect]
     Indication: BACK PAIN
     Dosage: 60MG, DAILLY
     Route: 048
     Dates: start: 20120606
  2. ACETAMINOPHEN W/ CODEINE [Concomitant]
     Indication: BACK PAIN
     Route: 048

REACTIONS (5)
  - NAUSEA [None]
  - DEPRESSED LEVEL OF CONSCIOUSNESS [None]
  - CONFUSIONAL STATE [None]
  - MEMORY IMPAIRMENT [None]
  - HALLUCINATION [None]
